FAERS Safety Report 13398434 (Version 2)
Quarter: 2017Q2

REPORT INFORMATION
  Report Type: Spontaneous
  Country: PT (occurrence: PT)
  Receive Date: 20170403
  Receipt Date: 20170506
  Transmission Date: 20170830
  Serious: Yes (Other)
  Sender: FDA-Public Use
  Company Number: PT-ABBVIE-17P-130-1930006-00

PATIENT
  Age: 63 Year
  Sex: Male
  Weight: 76 kg

DRUGS (4)
  1. IBUPROFENO RATIOPHARM [Suspect]
     Active Substance: IBUPROFEN
     Indication: EAR INFECTION
     Route: 048
     Dates: start: 20170313, end: 20170315
  2. BEN-U-RON [Concomitant]
     Indication: PRODUCT USED FOR UNKNOWN INDICATION
     Route: 065
     Dates: start: 20170314, end: 20170314
  3. KLACID [Suspect]
     Active Substance: CLARITHROMYCIN
     Indication: EAR INFECTION
     Route: 048
     Dates: start: 20170314, end: 20170314
  4. VICTAN (ETHYL LOFLAZEPATE) [Concomitant]
     Indication: PRODUCT USED FOR UNKNOWN INDICATION
     Route: 065

REACTIONS (3)
  - Adverse reaction [Recovering/Resolving]
  - Skin burning sensation [Recovering/Resolving]
  - Drug hypersensitivity [Recovering/Resolving]

NARRATIVE: CASE EVENT DATE: 20170314
